FAERS Safety Report 11702221 (Version 4)
Quarter: 2016Q4

REPORT INFORMATION
  Report Type: Report from Study
  Country: FR (occurrence: FR)
  Receive Date: 20151105
  Receipt Date: 20161017
  Transmission Date: 20170206
  Serious: Yes (Hospitalization)
  Sender: FDA-Public Use
  Company Number: FR-JNJFOC-20151104481

PATIENT
  Age: 66 Year
  Sex: Male
  Weight: 102 kg

DRUGS (5)
  1. PARACETAMOL [Concomitant]
     Active Substance: ACETAMINOPHEN
     Indication: ANKYLOSING SPONDYLITIS
     Route: 065
     Dates: start: 20150511
  2. SPECIAFOLDINE [Suspect]
     Active Substance: FOLIC ACID
     Indication: ANKYLOSING SPONDYLITIS
     Route: 048
     Dates: start: 20150511, end: 20150928
  3. SIMPONI [Suspect]
     Active Substance: GOLIMUMAB
     Indication: ANKYLOSING SPONDYLITIS
     Route: 058
     Dates: start: 20150511, end: 20150928
  4. METOJECT [Suspect]
     Active Substance: METHOTREXATE SODIUM
     Indication: ANKYLOSING SPONDYLITIS
     Route: 042
     Dates: start: 20150511, end: 20150928
  5. UVEDOSE [Suspect]
     Active Substance: CHOLECALCIFEROL
     Indication: ANKYLOSING SPONDYLITIS
     Route: 048
     Dates: start: 20150511, end: 20150928

REACTIONS (4)
  - Chronic lymphocytic leukaemia [Not Recovered/Not Resolved]
  - Back pain [Recovered/Resolved]
  - Arthritis [Not Recovered/Not Resolved]
  - Back pain [Not Recovered/Not Resolved]

NARRATIVE: CASE EVENT DATE: 20150908
